FAERS Safety Report 16685155 (Version 1)
Quarter: 2019Q3

REPORT INFORMATION
  Report Type: Spontaneous
  Country: CN (occurrence: CN)
  Receive Date: 20190808
  Receipt Date: 20190808
  Transmission Date: 20191004
  Serious: Yes (Other)
  Sender: FDA-Public Use
  Company Number: CN-BRISTOL-MYERS SQUIBB COMPANY-BMS-2019-075665

PATIENT
  Age: 41 Year
  Sex: Female

DRUGS (1)
  1. OPDIVO [Suspect]
     Active Substance: NIVOLUMAB
     Indication: PANCREATIC CARCINOMA
     Dosage: 100MG
     Route: 042
     Dates: start: 20190712

REACTIONS (6)
  - Ascites [Unknown]
  - Eosinophil count increased [Unknown]
  - Intentional product use issue [Unknown]
  - Oedema [Unknown]
  - Pleural effusion [Unknown]
  - Cough [Unknown]
